FAERS Safety Report 8957101 (Version 1)
Quarter: 2012Q4

REPORT INFORMATION
  Report Type: 
  Country: US (occurrence: US)
  Receive Date: 20121210
  Receipt Date: 20121210
  Transmission Date: 20130627
  Serious: No
  Sender: FDA-Public Use
  Company Number: US-009507513-2012SP024806

PATIENT
  Sex: Female

DRUGS (1)
  1. CLARITIN REDITABS [Suspect]
     Indication: SINUS DISORDER
     Dosage: 10 mg, ONCE
     Route: 048
     Dates: start: 201204

REACTIONS (6)
  - Hallucination [Unknown]
  - Somnolence [Unknown]
  - Dizziness [Unknown]
  - Hypersensitivity [Unknown]
  - No therapeutic response [Unknown]
  - Off label use [Unknown]
